FAERS Safety Report 5209801-3 (Version None)
Quarter: 2007Q1

REPORT INFORMATION
  Report Type: 
  Country: None (occurrence: None)
  Receive Date: 20070108
  Receipt Date: 20061221
  Transmission Date: 20070707
  Serious: Yes (Other)
  Sender: FDA-Public Use
  Company Number: GAM-145-06-FR

PATIENT
  Age: 55 Year
  Sex: Male

DRUGS (1)
  1. OCTAGAM 5%             (INTRAVENOUS HUMAN INMMUNOGLOBULIN) [Suspect]
     Indication: POLYMYOSITIS
     Dosage: 1000 MG/KG
     Route: 042

REACTIONS (4)
  - CATHETER RELATED COMPLICATION [None]
  - INTERNATIONAL NORMALISED RATIO INCREASED [None]
  - LOCALISED OEDEMA [None]
  - VASCULAR INSUFFICIENCY [None]
